FAERS Safety Report 5949636-7 (Version None)
Quarter: 2008Q4

REPORT INFORMATION
  Report Type: 
  Country: None (occurrence: None)
  Receive Date: 20081112
  Receipt Date: 20081106
  Transmission Date: 20090506
  Serious: Yes (Other)
  Sender: FDA-Public Use
  Company Number: DE-WYE-G01826508

PATIENT
  Age: 20 Year
  Sex: Male
  Weight: 80 kg

DRUGS (4)
  1. TREVILOR RETARD [Suspect]
     Indication: DEPRESSION
     Route: 048
     Dates: start: 20040515, end: 20040525
  2. TREVILOR RETARD [Suspect]
     Indication: DRUG EFFECT DECREASED
  3. MIRTAZAPINE [Suspect]
     Indication: DEPRESSION
     Route: 048
     Dates: start: 20040417, end: 20040630
  4. MIRTAZAPINE [Suspect]
     Route: 048
     Dates: start: 20040701, end: 20040706

REACTIONS (2)
  - DRUG INTERACTION [None]
  - SEROTONIN SYNDROME [None]
